FAERS Safety Report 16971874 (Version 6)
Quarter: 2021Q2

REPORT INFORMATION
  Report Type: Spontaneous
  Country: US (occurrence: US)
  Receive Date: 20191029
  Receipt Date: 20210614
  Transmission Date: 20210716
  Serious: No
  Sender: FDA-Public Use
  Company Number: US-DSJP-DSU-2019-139244

PATIENT
  Sex: Female

DRUGS (3)
  1. TURALIO [Suspect]
     Active Substance: PEXIDARTINIB HYDROCHLORIDE
     Indication: NEOPLASM SKIN
     Dosage: 400 MG, BID
     Route: 048
     Dates: start: 20190914
  2. TURALIO [Suspect]
     Active Substance: PEXIDARTINIB HYDROCHLORIDE
     Dosage: 400 MG, BID
     Route: 048
     Dates: start: 20190914
  3. TURALIO [Suspect]
     Active Substance: PEXIDARTINIB HYDROCHLORIDE
     Dosage: 400 MG, BID
     Route: 048
     Dates: start: 20190914

REACTIONS (11)
  - Hair colour changes [Unknown]
  - Fatigue [Unknown]
  - Blood pressure increased [Unknown]
  - Tenderness [Unknown]
  - Pain [Unknown]
  - Product dose omission issue [Unknown]
  - Dysgeusia [Not Recovered/Not Resolved]
  - Off label use [Not Recovered/Not Resolved]
  - Joint swelling [Unknown]
  - Therapy change [Not Recovered/Not Resolved]
  - Hypoaesthesia [Recovered/Resolved]

NARRATIVE: CASE EVENT DATE: 2019
